FAERS Safety Report 18629280 (Version 8)
Quarter: 2021Q3

REPORT INFORMATION
  Report Type: Spontaneous
  Country: US (occurrence: US)
  Receive Date: 20201217
  Receipt Date: 20210915
  Transmission Date: 20211014
  Serious: Yes (Hospitalization, Other)
  Sender: FDA-Public Use
  Company Number: US-BAYER-2020-278088

PATIENT
  Age: 41 Year
  Sex: Male

DRUGS (11)
  1. KOGENATE FS [Suspect]
     Active Substance: ANTIHEMOPHILIC FACTOR, HUMAN RECOMBINANT
     Dosage: 2012 IU
     Route: 042
  2. KOGENATE FS [Suspect]
     Active Substance: ANTIHEMOPHILIC FACTOR, HUMAN RECOMBINANT
     Dosage: 2 DOSES GIVEN FOR LEFT  SHOULDER BLEED
     Route: 042
     Dates: start: 20201206, end: 20201206
  3. KOGENATE FS [Suspect]
     Active Substance: ANTIHEMOPHILIC FACTOR, HUMAN RECOMBINANT
     Dosage: 2012 UNK, 3 DOSES
     Route: 042
  4. COVID?19 VACCINE [Concomitant]
     Dosage: 1ST DOSE
     Dates: start: 20210330, end: 20210330
  5. KOGENATE FS [Suspect]
     Active Substance: ANTIHEMOPHILIC FACTOR, HUMAN RECOMBINANT
     Dosage: 2134 IU, BID, FOR THE RIGHT FINGER CUT EVENT
     Dates: start: 20210517
  6. KOGENATE FS [Suspect]
     Active Substance: ANTIHEMOPHILIC FACTOR, HUMAN RECOMBINANT
     Dosage: UNK; INFUSE EVERY 12 HOURS, MAYBE INFUSING A FEW MORE DAYS
     Route: 042
     Dates: start: 20210710
  7. KOGENATE FS [Suspect]
     Active Substance: ANTIHEMOPHILIC FACTOR, HUMAN RECOMBINANT
     Dosage: 2 DOSES GIVEN FOR RIGHT ANKLE BLEED
     Route: 042
     Dates: start: 20201202, end: 20201202
  8. KOGENATE FS [Suspect]
     Active Substance: ANTIHEMOPHILIC FACTOR, HUMAN RECOMBINANT
     Dosage: 1 DF, ONCE; USED 1 DOSE FOR COVID VACCINE
     Route: 042
     Dates: start: 20210330, end: 20210330
  9. KOGENATE FS [Suspect]
     Active Substance: ANTIHEMOPHILIC FACTOR, HUMAN RECOMBINANT
     Dosage: 2064 U, UNK
     Route: 042
  10. KOGENATE FS [Suspect]
     Active Substance: ANTIHEMOPHILIC FACTOR, HUMAN RECOMBINANT
     Dosage: 2134 U, UNK
     Route: 042
  11. KOGENATE FS [Suspect]
     Active Substance: ANTIHEMOPHILIC FACTOR, HUMAN RECOMBINANT
     Dosage: 4 DF; PRETREATING FOR PHYSICAL ACTIVITY IN YARD
     Route: 042
     Dates: start: 20210405, end: 20210408

REACTIONS (7)
  - Gastric haemorrhage [None]
  - Limb injury [None]
  - Haemarthrosis [Recovered/Resolved]
  - Haemarthrosis [Recovered/Resolved]
  - Traumatic haemorrhage [Recovered/Resolved]
  - Haemarthrosis [Recovered/Resolved]
  - Alcoholism [None]

NARRATIVE: CASE EVENT DATE: 20201202
